FAERS Safety Report 5486863-X (Version None)
Quarter: 2007Q4

REPORT INFORMATION
  Report Type: 
  Country: None (occurrence: None)
  Receive Date: 20071012
  Receipt Date: 20071012
  Transmission Date: 20080405
  Serious: Yes (Hospitalization)
  Sender: FDA-Public Use
  Company Number: None

PATIENT
  Sex: Female
  Weight: 118 kg

DRUGS (2)
  1. ACTOS [Suspect]
     Indication: DIABETES MELLITUS
     Dosage: 15 MG - 3 TABS ONCE DAILY ORAL
     Route: 048
     Dates: start: 20070609, end: 20070927
  2. LANTUS [Concomitant]

REACTIONS (3)
  - FALL [None]
  - HAEMATOMA [None]
  - SYNCOPE [None]
